FAERS Safety Report 5032189-8 (Version None)
Quarter: 2006Q2

REPORT INFORMATION
  Report Type: 
  Country: None (occurrence: None)
  Receive Date: 20060619
  Receipt Date: 20060609
  Transmission Date: 20061013
  Serious: Yes (Hospitalization, Other)
  Sender: FDA-Public Use
  Company Number: US-2006-000517

PATIENT
  Age: 33 Year
  Sex: Female
  Weight: 95 kg

DRUGS (2)
  1. YASMIN [Suspect]
     Indication: MENSTRUAL DISORDER
     Dosage: 1 TAB(S), 1X/DAY, ORAL
     Route: 048
     Dates: start: 20040712, end: 20051113
  2. SPIRONOLACTONE [Concomitant]

REACTIONS (30)
  - APHASIA [None]
  - BLINDNESS UNILATERAL [None]
  - BLOOD PRESSURE INCREASED [None]
  - BUNDLE BRANCH BLOCK LEFT [None]
  - CARDIAC FLUTTER [None]
  - CEREBROVASCULAR ACCIDENT [None]
  - COGNITIVE DISORDER [None]
  - CONFUSIONAL STATE [None]
  - CONSTIPATION [None]
  - DEPRESSION [None]
  - DIZZINESS [None]
  - DYSPHAGIA [None]
  - EMOTIONAL DISTRESS [None]
  - ENCEPHALOMALACIA [None]
  - FEAR [None]
  - FEELING ABNORMAL [None]
  - GAIT DISTURBANCE [None]
  - HEADACHE [None]
  - HEMIPARESIS [None]
  - IMPAIRED DRIVING ABILITY [None]
  - ISCHAEMIC STROKE [None]
  - METRORRHAGIA [None]
  - MOOD SWINGS [None]
  - NAUSEA [None]
  - PAIN [None]
  - READING DISORDER [None]
  - SUICIDAL IDEATION [None]
  - THINKING ABNORMAL [None]
  - URINARY TRACT INFECTION [None]
  - VISUAL FIELD DEFECT [None]
